FAERS Safety Report 14120692 (Version 1)
Quarter: 2017Q4

REPORT INFORMATION
  Report Type: Spontaneous
  Country: IN (occurrence: IN)
  Receive Date: 20171024
  Receipt Date: 20171024
  Transmission Date: 20180321
  Serious: Yes (Other)
  Sender: FDA-Public Use
  Company Number: IN-BAUSCH-BL-2017-029745

PATIENT
  Age: 52 Year
  Sex: Female

DRUGS (10)
  1. INSULIN [Concomitant]
     Active Substance: INSULIN NOS
     Indication: DIABETES MELLITUS
     Dates: start: 2013
  2. PREDNISOLONE. [Suspect]
     Active Substance: PREDNISOLONE
     Indication: POLYMYOSITIS
     Dosage: PER DAY
     Route: 065
     Dates: start: 2013, end: 2013
  3. LEVOTHYROXINE. [Concomitant]
     Active Substance: LEVOTHYROXINE
     Indication: HYPOTHYROIDISM
     Dosage: PER DAY
  4. PREDNISOLONE. [Suspect]
     Active Substance: PREDNISOLONE
     Dosage: PER DAY
     Route: 065
     Dates: start: 2013, end: 2013
  5. METHOTREXATE. [Suspect]
     Active Substance: METHOTREXATE
     Dosage: WEEKLY
     Route: 048
     Dates: start: 2013, end: 2013
  6. TELMISARTAN AND HYDROCHLOROTHIAZIDE [Concomitant]
     Active Substance: HYDROCHLOROTHIAZIDE\TELMISARTAN
     Indication: HYPERTENSION
  7. METHOTREXATE. [Suspect]
     Active Substance: METHOTREXATE
     Indication: POLYMYOSITIS
     Dosage: WEEKLY
     Route: 048
     Dates: start: 2013, end: 2013
  8. METHOTREXATE. [Suspect]
     Active Substance: METHOTREXATE
     Dosage: WEEKLY
     Route: 065
     Dates: start: 2013, end: 2013
  9. METHOTREXATE. [Suspect]
     Active Substance: METHOTREXATE
     Dosage: WEEKLY
     Route: 065
     Dates: start: 2013, end: 2013
  10. METFORMIN [Concomitant]
     Active Substance: METFORMIN HYDROCHLORIDE
     Indication: DIABETES MELLITUS
     Dates: start: 2013

REACTIONS (3)
  - Cellulitis [Unknown]
  - Drug ineffective [Unknown]
  - Disseminated tuberculosis [Recovered/Resolved]

NARRATIVE: CASE EVENT DATE: 2013
